FAERS Safety Report 9675935 (Version 1)
Quarter: 2013Q4

REPORT INFORMATION
  Report Type: Spontaneous
  Country: US (occurrence: None)
  Receive Date: 20131105
  Receipt Date: 20131105
  Transmission Date: 20140711
  Serious: Yes (Other)
  Sender: FDA-Public Use
  Company Number: SYM-2013-12050

PATIENT
  Age: 14 Year
  Sex: Male
  Weight: 49.9 kg

DRUGS (1)
  1. ACNEFREE SENSITIVE 3PC 24HR ACS: CLEANSER, TONER, LOTION(CLEANSE AND TREAT)(SALICYLIC ACID, BENZOYL PEROXIDE) [Suspect]
     Indication: ACNE
     Route: 061
     Dates: start: 201310, end: 20131020

REACTIONS (4)
  - Pruritus [None]
  - Nasal oedema [None]
  - Swelling face [None]
  - Eye swelling [None]
